FAERS Safety Report 10175218 (Version 1)
Quarter: 2014Q2

REPORT INFORMATION
  Report Type: Spontaneous
  Country: US (occurrence: US)
  Receive Date: 20140515
  Receipt Date: 20140515
  Transmission Date: 20141212
  Serious: No
  Sender: FDA-Public Use
  Company Number: US-VIVUS-2014V1000104

PATIENT
  Sex: Female

DRUGS (12)
  1. QSYMIA 3.75MG/23MG [Suspect]
     Indication: WEIGHT DECREASED
     Route: 048
     Dates: start: 20140212
  2. QSYMIA 3.75MG/23MG [Suspect]
     Indication: BLOOD PRESSURE MANAGEMENT
  3. SYNTHROID [Concomitant]
     Indication: HYPOTHYROIDISM
     Route: 048
     Dates: start: 201312
  4. PANTOPRAZOLE [Concomitant]
     Indication: ABDOMINAL DISCOMFORT
     Route: 048
  5. ASPIRIN [Concomitant]
     Indication: HYPERCOAGULATION
     Route: 048
  6. CO Q10 [Concomitant]
     Indication: HYPERCOAGULATION
     Route: 048
  7. VITAMIN B12 + FOLIC ACID [Concomitant]
     Indication: NUTRITIONAL SUPPLEMENTATION
     Route: 048
  8. VITAMIN B12 [Concomitant]
     Indication: HYPERCOAGULATION
  9. VITAMIN C [Concomitant]
     Indication: NUTRITIONAL SUPPLEMENTATION
     Route: 048
  10. APPLE CIDER VINEGAR TABLET [Concomitant]
     Indication: NUTRITIONAL SUPPLEMENTATION
     Route: 048
  11. MULTIVITAMIN [Concomitant]
     Indication: NUTRITIONAL SUPPLEMENTATION
     Route: 048
  12. AMLODIPINE [Concomitant]
     Indication: HYPERTENSION
     Route: 048
     Dates: start: 201212

REACTIONS (1)
  - Asthenia [Not Recovered/Not Resolved]
